FAERS Safety Report 10744631 (Version 1)
Quarter: 2015Q1

REPORT INFORMATION
  Report Type: Spontaneous
  Country: US (occurrence: None)
  Receive Date: 20150126
  Receipt Date: 20150126
  Transmission Date: 20150721
  Serious: Yes (Hospitalization)
  Sender: FDA-Public Use
  Company Number: None

PATIENT
  Age: 80 Year
  Sex: Female
  Weight: 47 kg

DRUGS (1)
  1. SUNITINIB MALATE (SU011248 L-MALATE) [Suspect]
     Active Substance: SUNITINIB MALATE
     Dates: end: 20150118

REACTIONS (12)
  - Acute kidney injury [None]
  - Pyrexia [None]
  - Dehydration [None]
  - Fall [None]
  - Decreased appetite [None]
  - Dizziness [None]
  - Thrombocytopenia [None]
  - Asthenia [None]
  - Disseminated intravascular coagulation [None]
  - Musculoskeletal pain [None]
  - Hypotension [None]
  - Syncope [None]

NARRATIVE: CASE EVENT DATE: 20150118
